FAERS Safety Report 7966865-1 (Version None)
Quarter: 2011Q4

REPORT INFORMATION
  Report Type: 
  Country: None (occurrence: None)
  Receive Date: 20111209
  Receipt Date: 20111206
  Transmission Date: 20120403
  Serious: No
  Sender: FDA-Public Use
  Company Number: US-PFIZER INC-2011296926

PATIENT
  Sex: Male

DRUGS (1)
  1. TOVIAZ [Suspect]
     Indication: POLLAKIURIA
     Dosage: UNK

REACTIONS (6)
  - MALAISE [None]
  - CONSTIPATION [None]
  - OROPHARYNGEAL PAIN [None]
  - DYSPHONIA [None]
  - PHARYNGEAL OEDEMA [None]
  - POLLAKIURIA [None]
